FAERS Safety Report 6269848-5 (Version None)
Quarter: 2009Q3

REPORT INFORMATION
  Report Type: 
  Country: None (occurrence: None)
  Receive Date: 20090716
  Receipt Date: 20090709
  Transmission Date: 20100115
  Serious: Yes (Other)
  Sender: FDA-Public Use
  Company Number: AT-BAYER-200925258GPV

PATIENT
  Age: 69 Year
  Sex: Male

DRUGS (2)
  1. LEVITRA [Suspect]
     Indication: ERECTILE DYSFUNCTION
     Route: 048
     Dates: start: 20080101
  2. LEVITRA [Suspect]
     Route: 048
     Dates: start: 20080501

REACTIONS (1)
  - RENAL NEOPLASM [None]
